FAERS Safety Report 6372851-8 (Version None)
Quarter: 2009Q3

REPORT INFORMATION
  Report Type: 
  Country: None (occurrence: None)
  Receive Date: 20090924
  Receipt Date: 20081209
  Transmission Date: 20100115
  Serious: Yes (Other)
  Sender: FDA-Public Use
  Company Number: US-ASTRAZENECA-2008UW27343

PATIENT
  Age: 55 Year
  Sex: Female
  Weight: 104.3 kg

DRUGS (4)
  1. SEROQUEL [Suspect]
     Indication: BIPOLAR I DISORDER
     Route: 048
     Dates: end: 20081001
  2. SEROQUEL [Suspect]
     Indication: SCHIZOPHRENIA
     Route: 048
     Dates: end: 20081001
  3. COGENTIN [Concomitant]
  4. HIV MEDICATION [Concomitant]

REACTIONS (2)
  - DIABETES MELLITUS [None]
  - SOMNOLENCE [None]
